FAERS Safety Report 12648039 (Version 1)
Quarter: 2016Q3

REPORT INFORMATION
  Report Type: Spontaneous
  Country: US (occurrence: None)
  Receive Date: 20160811
  Receipt Date: 20160811
  Transmission Date: 20161109
  Serious: Yes (Death, Hospitalization)
  Sender: FDA-Public Use
  Company Number: None

PATIENT
  Age: 72 Year
  Sex: Male
  Weight: 84 kg

DRUGS (1)
  1. CARFILZOMIB [Suspect]
     Active Substance: CARFILZOMIB
     Indication: PLASMA CELL MYELOMA
     Dosage: 56 MG/M2  DAYS 8 AND 9 INTRAVENOUS (NOT OTHERWISE SPECIFIED)
     Route: 042
     Dates: start: 20160727, end: 20160804

REACTIONS (11)
  - Renal tubular necrosis [None]
  - Septic shock [None]
  - Pulmonary arterial pressure abnormal [None]
  - Muscular weakness [None]
  - Cardio-respiratory arrest [None]
  - Troponin increased [None]
  - Acute kidney injury [None]
  - Respiratory failure [None]
  - Pulmonary alveolar haemorrhage [None]
  - Balance disorder [None]
  - Pneumonia [None]

NARRATIVE: CASE EVENT DATE: 20160806
